FAERS Safety Report 5638938-X (Version None)
Quarter: 2008Q1

REPORT INFORMATION
  Report Type: 
  Country: None (occurrence: None)
  Receive Date: 20080222
  Receipt Date: 20080211
  Transmission Date: 20080703
  Serious: Yes (Death, Life-Threatening, Hospitalization)
  Sender: FDA-Public Use
  Company Number: 100#08#2008-00858

PATIENT
  Age: 69 Year
  Sex: Male

DRUGS (1)
  1. METHYLPREDNISOLONE [Suspect]
     Indication: ANAEMIA HAEMOLYTIC AUTOIMMUNE
     Dosage: 1.5 MG/KG DAILY ; 1 MG/KG DAILY

REACTIONS (10)
  - HEPATIC FAILURE [None]
  - HERPES VIRUS INFECTION [None]
  - HISTIOCYTOSIS HAEMATOPHAGIC [None]
  - HYPERGLYCAEMIA [None]
  - HYPONATRAEMIA [None]
  - LUNG INFILTRATION [None]
  - MARROW HYPERPLASIA [None]
  - METABOLIC DISORDER [None]
  - PANCYTOPENIA [None]
  - VIRAL INFECTION [None]
